FAERS Safety Report 5692911-4 (Version None)
Quarter: 2008Q2

REPORT INFORMATION
  Report Type: 
  Country: None (occurrence: None)
  Receive Date: 20080327
  Receipt Date: 20071210
  Transmission Date: 20081010
  Serious: Yes (Hospitalization)
  Sender: FDA-Public Use
  Company Number: A03200706877

PATIENT
  Age: 77 Year
  Sex: Female

DRUGS (2)
  1. AMBIEN CR [Suspect]
     Indication: INSOMNIA
     Dosage: 6.25 MG HS - ORAL
     Route: 048
     Dates: start: 20071030, end: 20071108
  2. ENALAPRIL MALEATE [Concomitant]

REACTIONS (2)
  - AMNESIA [None]
  - COORDINATION ABNORMAL [None]
